FAERS Safety Report 20776308 (Version 1)
Quarter: 2022Q2

REPORT INFORMATION
  Report Type: Spontaneous
  Country: US (occurrence: US)
  Receive Date: 20220502
  Receipt Date: 20220502
  Transmission Date: 20220721
  Serious: No
  Sender: FDA-Public Use
  Company Number: US-SANOFI-01077066

PATIENT
  Age: 77 Year
  Sex: Female

DRUGS (5)
  1. SOLIQUA 100/33 [Suspect]
     Active Substance: INSULIN GLARGINE\LIXISENATIDE
     Indication: Type 2 diabetes mellitus
     Dosage: 30 IU, QD
     Dates: start: 20220425
  2. TOUJEO [Suspect]
     Active Substance: INSULIN GLARGINE
     Dosage: 36 IU
  3. NOVOLOG [Suspect]
     Active Substance: INSULIN ASPART
     Dosage: 4 IU
  4. LIPITOR [Concomitant]
     Active Substance: ATORVASTATIN CALCIUM
     Dosage: UNK
  5. METFORMIN HYDROCHLORIDE [Concomitant]
     Active Substance: METFORMIN HYDROCHLORIDE
     Dosage: UNK

REACTIONS (6)
  - Headache [Unknown]
  - Nausea [Unknown]
  - Cough [Unknown]
  - Feeling abnormal [Unknown]
  - Blood glucose fluctuation [Unknown]
  - Blood glucose decreased [Unknown]

NARRATIVE: CASE EVENT DATE: 20220425
